FAERS Safety Report 25197782 (Version 1)
Quarter: 2025Q2

REPORT INFORMATION
  Report Type: Spontaneous
  Country: GB (occurrence: GB)
  Receive Date: 20250415
  Receipt Date: 20250415
  Transmission Date: 20250716
  Serious: Yes (Other)
  Sender: AUROBINDO
  Company Number: GB-MHRA-MED-202503281518058250-GNLPK

PATIENT
  Age: 79 Year
  Sex: Female
  Weight: 76 kg

DRUGS (3)
  1. AMIODARONE [Suspect]
     Active Substance: AMIODARONE
     Indication: Arrhythmia supraventricular
     Dosage: 200 MILLIGRAM, ONCE A DAY
     Route: 065
     Dates: start: 20241112
  2. BISOPROLOL [Concomitant]
     Active Substance: BISOPROLOL
     Indication: Product used for unknown indication
     Route: 065
     Dates: start: 20241001
  3. APIXABAN [Concomitant]
     Active Substance: APIXABAN
     Indication: Product used for unknown indication
     Route: 065
     Dates: start: 20241001

REACTIONS (8)
  - Vertigo [Not Recovered/Not Resolved]
  - Visual impairment [Unknown]
  - Diplopia [Unknown]
  - Drug monitoring procedure not performed [Unknown]
  - Aura [Unknown]
  - Balance disorder [Unknown]
  - Gait disturbance [Unknown]
  - Dizziness [Unknown]

NARRATIVE: CASE EVENT DATE: 20241212
